FAERS Safety Report 20457413 (Version 4)
Quarter: 2022Q1

REPORT INFORMATION
  Report Type: Report from Study
  Country: HU (occurrence: HU)
  Receive Date: 20220210
  Receipt Date: 20220304
  Transmission Date: 20220423
  Serious: No
  Sender: FDA-Public Use
  Company Number: HU-UROVANT SCIENCES GMBH-202202-URV-000075

PATIENT
  Age: 67 Year
  Sex: Male
  Weight: 84 kg

DRUGS (7)
  1. PLACEBO [Suspect]
     Active Substance: UNSPECIFIED INGREDIENT
     Indication: Hypertonic bladder
     Dosage: UNK MILLIGRAM, QD
     Route: 048
     Dates: start: 20220119, end: 20220201
  2. VIBEGRON [Suspect]
     Active Substance: VIBEGRON
     Indication: Hypertonic bladder
     Dosage: UNK MILLIGRAM, QD
     Route: 048
     Dates: start: 20220119, end: 20220201
  3. ALFUZOSIN [Concomitant]
     Active Substance: ALFUZOSIN
     Indication: Benign prostatic hyperplasia
     Dosage: 10 MILLIGRAM;
     Route: 048
     Dates: start: 200909
  4. SOLIFENACIN\TAMSULOSIN [Concomitant]
     Active Substance: SOLIFENACIN\TAMSULOSIN
     Indication: Hypertonic bladder
     Dosage: 0.4/5 MG, QD
     Route: 048
     Dates: start: 201702, end: 201703
  5. MIRABEGRON [Concomitant]
     Active Substance: MIRABEGRON
     Indication: Hypertonic bladder
     Dosage: 50 MG, QD
     Route: 048
     Dates: start: 202007, end: 202008
  6. TADALAFIL [Concomitant]
     Active Substance: TADALAFIL
     Indication: Hypertonic bladder
     Dosage: 5 MG, QD
     Route: 048
     Dates: start: 202007, end: 202008
  7. AMLODIPINE BESYLATE\PERINDOPRIL ARGININE [Concomitant]
     Active Substance: AMLODIPINE BESYLATE\PERINDOPRIL ARGININE
     Indication: Hypertension
     Dosage: UNK MILLIGRAM, QD
     Route: 048

REACTIONS (1)
  - Syncope [Recovered/Resolved]

NARRATIVE: CASE EVENT DATE: 20220131
